FAERS Safety Report 5661857-X (Version None)
Quarter: 2008Q1

REPORT INFORMATION
  Report Type: 
  Country: None (occurrence: None)
  Receive Date: 20080306
  Receipt Date: 20080221
  Transmission Date: 20080703
  Serious: Yes (Other)
  Sender: FDA-Public Use
  Company Number: 2008RR-13203

PATIENT
  Age: 57 Year
  Sex: Female

DRUGS (4)
  1. FLUOXETINE [Suspect]
     Dosage: 20 MG,QD,
  2. MODAFINIL [Concomitant]
  3. METILPHENIDATE (METILPHENIDATE) [Concomitant]
  4. MAZINDOL (MAZINDOL) [Concomitant]

REACTIONS (1)
  - CATAPLEXY [None]
